FAERS Safety Report 11327738 (Version 6)
Quarter: 2015Q4

REPORT INFORMATION
  Report Type: Report from Study
  Country: CA (occurrence: CA)
  Receive Date: 20150731
  Receipt Date: 20151215
  Transmission Date: 20160304
  Serious: Yes (Other)
  Sender: FDA-Public Use
  Company Number: CA-ROCHE-1608792

PATIENT
  Age: 79 Year
  Sex: Male

DRUGS (18)
  1. VITAMIN B12 [Concomitant]
     Active Substance: CYANOCOBALAMIN
  2. ELTROXIN [Concomitant]
     Active Substance: LEVOTHYROXINE
  3. ZYLOPRIM [Concomitant]
     Active Substance: ALLOPURINOL
  4. PANTOLOC [Concomitant]
     Active Substance: PANTOPRAZOLE SODIUM
  5. ACETYLSALICYLIC ACID (EC) [Concomitant]
     Route: 065
  6. ESBRIET [Suspect]
     Active Substance: PIRFENIDONE
     Route: 048
     Dates: start: 20150617
  7. QUININE SULFATE. [Concomitant]
     Active Substance: QUININE SULFATE
  8. DIAMICRON [Concomitant]
     Active Substance: GLICLAZIDE
  9. BROMOCRIPTINE [Concomitant]
     Active Substance: BROMOCRIPTINE
  10. METFORMIN [Concomitant]
     Active Substance: METFORMIN HYDROCHLORIDE
  11. ESBRIET [Suspect]
     Active Substance: PIRFENIDONE
     Route: 048
     Dates: start: 20150624
  12. ROSUVASTATIN [Concomitant]
     Active Substance: ROSUVASTATIN
  13. ACETAMINOPHEN. [Concomitant]
     Active Substance: ACETAMINOPHEN
     Dosage: AS REQUIRED
     Route: 065
  14. ESBRIET [Suspect]
     Active Substance: PIRFENIDONE
     Indication: IDIOPATHIC PULMONARY FIBROSIS
     Route: 048
     Dates: start: 20150610
  15. SEEBRI [Concomitant]
     Active Substance: GLYCOPYRRONIUM
  16. ESBRIET [Suspect]
     Active Substance: PIRFENIDONE
     Route: 048
     Dates: start: 20151127
  17. TAMULOSIN [Concomitant]
     Active Substance: TAMSULOSIN
  18. ADVAIR HFA [Concomitant]
     Active Substance: FLUTICASONE PROPIONATE\SALMETEROL XINAFOATE

REACTIONS (14)
  - Vomiting [Unknown]
  - Oral discomfort [Not Recovered/Not Resolved]
  - Erythema [Not Recovered/Not Resolved]
  - Burning sensation [Not Recovered/Not Resolved]
  - Oxygen saturation decreased [Unknown]
  - Back pain [Not Recovered/Not Resolved]
  - Cheilitis [Not Recovered/Not Resolved]
  - Pneumonia [Not Recovered/Not Resolved]
  - Abdominal pain upper [Not Recovered/Not Resolved]
  - Dehydration [Unknown]
  - Nephrolithiasis [Not Recovered/Not Resolved]
  - Blood creatinine decreased [Unknown]
  - Cough [Unknown]
  - Drug dose omission [Unknown]

NARRATIVE: CASE EVENT DATE: 20150610
